FAERS Safety Report 11399666 (Version 1)
Quarter: 2015Q3

REPORT INFORMATION
  Report Type: Spontaneous
  Country: US (occurrence: None)
  Receive Date: 20150818
  Receipt Date: 20150818
  Transmission Date: 20151125
  Serious: Yes (Hospitalization)
  Sender: FDA-Public Use
  Company Number: None

PATIENT
  Age: 67 Year
  Sex: Female

DRUGS (1)
  1. CIMZIA [Suspect]
     Active Substance: CERTOLIZUMAB PEGOL
     Indication: PSORIATIC ARTHROPATHY
     Route: 058
     Dates: start: 20140801, end: 20150724

REACTIONS (4)
  - Chest pain [None]
  - Pleural effusion [None]
  - Pneumonia [None]
  - Pericardial effusion [None]

NARRATIVE: CASE EVENT DATE: 20150724
